FAERS Safety Report 8534230-4 (Version None)
Quarter: 2012Q3

REPORT INFORMATION
  Report Type: 
  Country: None (occurrence: None)
  Receive Date: 20120724
  Receipt Date: 20120717
  Transmission Date: 20120928
  Serious: Yes (Other)
  Sender: FDA-Public Use
  Company Number: JP-VERTEX PHARMACEUTICALS INC.-AE-2012-002733

PATIENT
  Sex: Male

DRUGS (4)
  1. REBETOL [Concomitant]
     Route: 048
     Dates: start: 20120315
  2. TELAVIC (TELAPREVIR) [Suspect]
     Indication: HEPATITIS C
     Route: 048
     Dates: start: 20120217, end: 20120509
  3. PEG-INTRON [Concomitant]
     Indication: HEPATITIS C
     Dates: start: 20120217
  4. REBETOL [Concomitant]
     Indication: HEPATITIS C
     Route: 048
     Dates: start: 20120217, end: 20120314

REACTIONS (1)
  - TOXIC SKIN ERUPTION [None]
